FAERS Safety Report 10608226 (Version 2)
Quarter: 2014Q4

REPORT INFORMATION
  Report Type: Report from Study
  Country: US (occurrence: US)
  Receive Date: 20141125
  Receipt Date: 20141125
  Transmission Date: 20150529
  Serious: Yes (Other)
  Sender: FDA-Public Use
  Company Number: US-MYLANLABS-2014M1006693

PATIENT
  Age: 42 Year
  Sex: Male
  Weight: 85.26 kg

DRUGS (2)
  1. CLOZAPINE TABLETS, USP [Suspect]
     Active Substance: CLOZAPINE
     Dosage: 200 MG, BID
     Route: 048
     Dates: start: 20101220, end: 20140923
  2. LITHIUM [Suspect]
     Active Substance: LITHIUM CARBONATE
     Dosage: 450 MG, BID

REACTIONS (2)
  - Unevaluable event [Recovered/Resolved]
  - Granulocytopenia [Recovered/Resolved]

NARRATIVE: CASE EVENT DATE: 20140923
